FAERS Safety Report 10253267 (Version 1)
Quarter: 2014Q2

REPORT INFORMATION
  Report Type: Spontaneous
  Country: US (occurrence: None)
  Receive Date: 20140619
  Receipt Date: 20140619
  Transmission Date: 20141212
  Serious: No
  Sender: FDA-Public Use
  Company Number: None

PATIENT
  Age: 36 Year
  Sex: Female
  Weight: 86.64 kg

DRUGS (2)
  1. MONISTAT [Suspect]
     Indication: VULVOVAGINAL PRURITUS
     Dosage: 1 VAGINAL INSERT EGG AND CREAM ONCE DAILY VAGINAL
     Route: 067
     Dates: start: 20140607, end: 20140607
  2. LEVOTHYROXINE [Concomitant]

REACTIONS (4)
  - Application site pain [None]
  - Vulvovaginal pain [None]
  - Crying [None]
  - Application site pruritus [None]
